FAERS Safety Report 4534206-8 (Version None)
Quarter: 2004Q4

REPORT INFORMATION
  Report Type: 
  Country: None (occurrence: None)
  Receive Date: 20041222
  Receipt Date: 19970904
  Transmission Date: 20050328
  Serious: Yes (Death)
  Sender: FDA-Public Use
  Company Number: JP-SOLVAY-PANC003970012

PATIENT
  Age: 24385 Day
  Sex: Female
  Weight: 46 kg

DRUGS (6)
  1. URSOSAN [Concomitant]
     Indication: CHOLESTASIS
     Dosage: DAILY DOSE: 150 MG. FREQUENCY:UNKNOWN
     Route: 048
     Dates: start: 19961029, end: 19971010
  2. CREON [Suspect]
     Indication: PANCREATIC DISORDER
     Dosage: DAILY DOSE: 3 G. FREQUENCY:UNKNOWN
     Route: 048
     Dates: start: 19961122, end: 19970828
  3. ACENALIN [Concomitant]
     Indication: GASTROINTESTINAL DISORDER
     Dosage: DAILY DOSE: 15 MG. FREQUENCY:UNKNOWN
     Route: 048
     Dates: start: 19961008, end: 19971010
  4. BIO THREE [Concomitant]
     Indication: GASTROINTESTINAL DISORDER
     Dosage: DAILY DOSE: 3 G. FREQUENCY:UNKNOWN
     Route: 048
     Dates: start: 19961001, end: 19971010
  5. UFT [Concomitant]
     Indication: METASTASES TO LIVER
     Dosage: DAILY DOSE: 300 MG. FREQUENCY:UNKNOWN
     Route: 048
     Dates: start: 19970815, end: 19971207
  6. INDOMETHACIN [Concomitant]
     Indication: PYREXIA
     Dosage: DAILY DOSE:  UNKNOWN
     Route: 054
     Dates: start: 19961220, end: 19970828

REACTIONS (6)
  - ANOREXIA [None]
  - COUGH [None]
  - MALIGNANT NEOPLASM PROGRESSION [None]
  - METASTASES TO LIVER [None]
  - RESPIRATORY FAILURE [None]
  - WEIGHT DECREASED [None]
